FAERS Safety Report 17458414 (Version 1)
Quarter: 2020Q1

REPORT INFORMATION
  Report Type: Spontaneous
  Country: TW (occurrence: TW)
  Receive Date: 20200225
  Receipt Date: 20200225
  Transmission Date: 20200409
  Serious: Yes (Death, Other)
  Sender: FDA-Public Use
  Company Number: TW-AMGEN-TWNSP2020028611

PATIENT
  Age: 44 Year
  Sex: Female

DRUGS (4)
  1. FLUOROURACIL. [Concomitant]
     Active Substance: FLUOROURACIL
     Indication: COLORECTAL ADENOCARCINOMA
     Dosage: UNK UNK, CYCLICAL
  2. PANITUMUMAB [Suspect]
     Active Substance: PANITUMUMAB
     Indication: COLORECTAL ADENOCARCINOMA
     Dosage: UNK UNK, CYCLICAL
     Route: 065
  3. FOLINIC ACID [Concomitant]
     Active Substance: LEUCOVORIN
     Indication: COLORECTAL ADENOCARCINOMA
     Dosage: UNK UNK, CYCLICAL
  4. OXALIPLATIN. [Concomitant]
     Active Substance: OXALIPLATIN
     Indication: COLORECTAL ADENOCARCINOMA
     Dosage: UNK UNK, CYCLICAL

REACTIONS (3)
  - Adenocarcinoma of colon [Unknown]
  - Adverse event [Unknown]
  - Death [Fatal]
